FAERS Safety Report 20921202 (Version 1)
Quarter: 2022Q2

REPORT INFORMATION
  Report Type: Other
  Country: FR (occurrence: FR)
  Receive Date: 20220606
  Receipt Date: 20220606
  Transmission Date: 20220721
  Serious: Yes (Hospitalization)
  Sender: FDA-Public Use
  Company Number: None

PATIENT
  Age: 56 Year
  Sex: Male

DRUGS (2)
  1. VISIPAQUE [Suspect]
     Active Substance: IODIXANOL
     Indication: Computerised tomogram
     Dosage: UNK UNK, SINGLE
     Route: 041
     Dates: start: 20200622, end: 20200622
  2. VISIPAQUE [Suspect]
     Active Substance: IODIXANOL
     Indication: Product used for unknown indication

REACTIONS (1)
  - Septic shock [Recovered/Resolved]

NARRATIVE: CASE EVENT DATE: 20200601
